FAERS Safety Report 10673455 (Version 6)
Quarter: 2015Q4

REPORT INFORMATION
  Report Type: Report from Study
  Country: CA (occurrence: CA)
  Receive Date: 20141224
  Receipt Date: 20151110
  Transmission Date: 20160304
  Serious: Yes (Other)
  Sender: FDA-Public Use
  Company Number: CA-ROCHE-1428863

PATIENT
  Age: 59 Year
  Sex: Male
  Weight: 88.98 kg

DRUGS (11)
  1. RITUXAN [Suspect]
     Active Substance: RITUXIMAB
     Indication: GRANULOMATOSIS WITH POLYANGIITIS
     Route: 042
     Dates: start: 20130321
  2. RITUXAN [Suspect]
     Active Substance: RITUXIMAB
     Dosage: :
     Route: 042
     Dates: end: 20140728
  3. CYCLOPHOSPHAMIDE. [Suspect]
     Active Substance: CYCLOPHOSPHAMIDE
     Indication: PRODUCT USED FOR UNKNOWN INDICATION
     Dosage: STOPPED DUE TO DAMAGING THE BLADDER, SUSPECT CAUSING SHRINKING OF AORTIC VALVE
     Route: 065
     Dates: end: 201301
  4. IMURAN [Concomitant]
     Active Substance: AZATHIOPRINE
  5. VALSARTAN. [Concomitant]
     Active Substance: VALSARTAN
     Indication: BLOOD PRESSURE MEASUREMENT
     Route: 065
  6. DIPHENHYDRAMINE HCL [Concomitant]
     Active Substance: DIPHENHYDRAMINE HYDROCHLORIDE
     Indication: PREMEDICATION
     Route: 048
     Dates: start: 20130321
  7. METHYLPREDNISOLONE. [Concomitant]
     Active Substance: METHYLPREDNISOLONE
     Route: 042
     Dates: start: 20130321
  8. RITUXAN [Suspect]
     Active Substance: RITUXIMAB
     Route: 042
     Dates: start: 20131217
  9. ACETAMINOPHEN. [Concomitant]
     Active Substance: ACETAMINOPHEN
     Indication: PREMEDICATION
     Route: 048
     Dates: start: 20130321
  10. PANTOPRAZOLE [Concomitant]
     Active Substance: PANTOPRAZOLE SODIUM
     Route: 065
  11. PREDNISONE. [Concomitant]
     Active Substance: PREDNISONE

REACTIONS (7)
  - Flatulence [Unknown]
  - Lung neoplasm [Unknown]
  - Weight increased [Not Recovered/Not Resolved]
  - Hypertension [Unknown]
  - Bladder cancer [Unknown]
  - Hiatus hernia [Unknown]
  - Bladder disorder [Unknown]

NARRATIVE: CASE EVENT DATE: 201309
